FAERS Safety Report 4947940-2 (Version None)
Quarter: 2006Q1

REPORT INFORMATION
  Report Type: 
  Country: None (occurrence: None)
  Receive Date: 20060317
  Receipt Date: 20060317
  Transmission Date: 20060701
  Serious: Yes (Hospitalization)
  Sender: FDA-Public Use
  Company Number: None

PATIENT
  Age: 28 Year
  Sex: Male
  Weight: 79.3795 kg

DRUGS (1)
  1. LIDOCAINE 1% [Suspect]
     Indication: WRIST FRACTURE
     Dosage: ONCE ID
     Dates: start: 20050218, end: 20050218

REACTIONS (2)
  - SWELLING FACE [None]
  - URTICARIA GENERALISED [None]
